FAERS Safety Report 17493947 (Version 2)
Quarter: 2020Q1

REPORT INFORMATION
  Report Type: Report from Study
  Country: US (occurrence: US)
  Receive Date: 20200304
  Receipt Date: 20200320
  Transmission Date: 20200409
  Serious: Yes (Hospitalization)
  Sender: FDA-Public Use
  Company Number: NVSC2020US019913

PATIENT
  Age: 16 Year
  Sex: Male

DRUGS (16)
  1. VINCRISTINE [Suspect]
     Active Substance: VINCRISTINE
     Dosage: 2 MILLIGRAM PUSH ONCE
     Route: 042
     Dates: start: 20200210
  2. PEGASPARGASE [Suspect]
     Active Substance: PEGASPARGASE
     Dosage: 4650 INTERNATIONAL UNIT, ONCE
     Route: 042
     Dates: start: 20200210
  3. INCB018424 [Suspect]
     Active Substance: RUXOLITINIB
     Indication: ACUTE LYMPHOCYTIC LEUKAEMIA
     Dosage: 95 MILLIGRAM, BID
     Route: 048
     Dates: start: 20191223, end: 20200106
  4. VINCRISTINE [Suspect]
     Active Substance: VINCRISTINE
     Indication: ACUTE LYMPHOCYTIC LEUKAEMIA
     Dosage: 2 MILLIGRAM PUSH ONCE
     Route: 042
     Dates: start: 20200106, end: 20200113
  5. MERCAPTOPURINE. [Suspect]
     Active Substance: MERCAPTOPURINE
     Dosage: 125 MILLIGRAM, QD
     Route: 048
     Dates: start: 20200127
  6. PEGASPARGASE [Suspect]
     Active Substance: PEGASPARGASE
     Indication: ACUTE LYMPHOCYTIC LEUKAEMIA
     Dosage: 4650 INTERNATIONAL UNIT, ONCE
     Route: 042
     Dates: start: 20200106, end: 20200106
  7. METHOTREXATE. [Suspect]
     Active Substance: METHOTREXATE
     Indication: ACUTE LYMPHOCYTIC LEUKAEMIA
     Dosage: 15 MILLIGRAM ONCE
     Route: 037
     Dates: start: 20200113
  8. CYCLOPHOSPHAMIDE. [Suspect]
     Active Substance: CYCLOPHOSPHAMIDE
     Indication: ACUTE LYMPHOCYTIC LEUKAEMIA
     Dosage: 1868 MILLIGRAM, ONCE
     Route: 042
     Dates: start: 20191223
  9. CYTARABINE. [Suspect]
     Active Substance: CYTARABINE
     Dosage: 138 MILLIGRAM
     Route: 042
     Dates: start: 20200127
  10. INC424A [Suspect]
     Active Substance: RUXOLITINIB
     Indication: ACUTE LYMPHOCYTIC LEUKAEMIA
     Dosage: 95 MG, BID
     Route: 048
     Dates: start: 20191223, end: 20200106
  11. METHOTREXATE SODIUM. [Suspect]
     Active Substance: METHOTREXATE SODIUM
     Indication: ACUTE LYMPHOCYTIC LEUKAEMIA
     Dosage: 15 MG, ONCE/SINGLE
     Route: 037
     Dates: start: 20200113
  12. CYCLOPHOSPHAMIDE. [Suspect]
     Active Substance: CYCLOPHOSPHAMIDE
     Dosage: 1868 MILLIGRAM, ONCE
     Route: 042
     Dates: start: 20200127
  13. CYTARABINE. [Suspect]
     Active Substance: CYTARABINE
     Indication: ACUTE LYMPHOCYTIC LEUKAEMIA
     Dosage: 138 MILLIGRAM
     Route: 042
     Dates: start: 20191223, end: 20200101
  14. INCB018424 [Suspect]
     Active Substance: RUXOLITINIB
     Dosage: 90 MILLIGRAM, BID
     Route: 048
     Dates: start: 20200127
  15. INC424A [Suspect]
     Active Substance: RUXOLITINIB
     Dosage: 90 MG, BID
     Route: 048
     Dates: start: 20200127
  16. MERCAPTOPURINE. [Suspect]
     Active Substance: MERCAPTOPURINE
     Indication: ACUTE LYMPHOCYTIC LEUKAEMIA
     Dosage: 125 MILLIGRAM, QD
     Route: 048
     Dates: start: 20191223, end: 20200106

REACTIONS (1)
  - Febrile neutropenia [Recovered/Resolved]

NARRATIVE: CASE EVENT DATE: 20200116
